FAERS Safety Report 8031158-3 (Version None)
Quarter: 2012Q1

REPORT INFORMATION
  Report Type: 
  Country: None (occurrence: None)
  Receive Date: 20120109
  Receipt Date: 20111226
  Transmission Date: 20120608
  Serious: Yes (Hospitalization)
  Sender: FDA-Public Use
  Company Number: JP-ROCHE-GNE306579

PATIENT
  Age: 80 Year
  Sex: Female
  Weight: 50.076 kg

DRUGS (9)
  1. OMALIZUMAB [Suspect]
     Dates: start: 20100606
  2. OMALIZUMAB [Suspect]
     Indication: ASTHMA
     Route: 058
     Dates: start: 20091218
  3. OMALIZUMAB [Suspect]
     Dates: start: 20100507
  4. HORMONES NOS [Suspect]
     Indication: ASTHMA
  5. SALMETEROL XINAFOATE [Concomitant]
     Dates: start: 20090601
  6. THEOLONG [Concomitant]
     Dates: start: 20090618
  7. PREDNISOLONE [Concomitant]
     Dates: start: 20090618
  8. ONON [Concomitant]
  9. PREDNISOLONE [Concomitant]
     Dates: end: 20100729

REACTIONS (1)
  - MUSCULAR WEAKNESS [None]
